FAERS Safety Report 12819446 (Version 1)
Quarter: 2016Q4

REPORT INFORMATION
  Report Type: Report from Study
  Country: US (occurrence: US)
  Receive Date: 20161006
  Receipt Date: 20161006
  Transmission Date: 20170207
  Serious: No
  Sender: FDA-Public Use
  Company Number: US-AMGEN-USASL2016004051

PATIENT
  Age: 74 Year
  Sex: Female

DRUGS (1)
  1. PROLIA [Suspect]
     Active Substance: DENOSUMAB
     Indication: OSTEOPOROSIS POSTMENOPAUSAL
     Dosage: UNK
     Route: 065

REACTIONS (6)
  - Blood iron decreased [Unknown]
  - Immune system disorder [Unknown]
  - Pain [Recovering/Resolving]
  - Myalgia [Recovering/Resolving]
  - Bone density abnormal [Unknown]
  - Musculoskeletal disorder [Unknown]
